FAERS Safety Report 12087989 (Version 1)
Quarter: 2016Q1

REPORT INFORMATION
  Report Type: Spontaneous
  Country: US (occurrence: US)
  Receive Date: 20160217
  Receipt Date: 20160217
  Transmission Date: 20160526
  Serious: No
  Sender: FDA-Public Use
  Company Number: US-ALLERGAN-1526509US

PATIENT
  Age: 38 Year
  Sex: Male

DRUGS (3)
  1. LIDOCAINE AND EPINEPHRINE [Concomitant]
     Active Substance: EPINEPHRINE\LIDOCAINE HYDROCHLORIDE
     Indication: MAINTENANCE OF ANAESTHESIA
  2. KYBELLA [Suspect]
     Active Substance: DEOXYCHOLIC ACID
     Indication: FAT TISSUE INCREASED
     Dosage: 4 ML, SINGLE
     Route: 058
     Dates: start: 20150925, end: 20150925
  3. KYBELLA [Suspect]
     Active Substance: DEOXYCHOLIC ACID
     Dosage: 4 ML, SINGLE
     Route: 058
     Dates: start: 20150810, end: 20150810

REACTIONS (1)
  - Alopecia [Not Recovered/Not Resolved]

NARRATIVE: CASE EVENT DATE: 20151023
